FAERS Safety Report 5342204-X (Version None)
Quarter: 2007Q2

REPORT INFORMATION
  Report Type: 
  Country: None (occurrence: None)
  Receive Date: 20070601
  Receipt Date: 20070525
  Transmission Date: 20071010
  Serious: Yes (Death)
  Sender: FDA-Public Use
  Company Number: US-ROCHE-499418

PATIENT
  Age: 56 Year
  Sex: Male

DRUGS (3)
  1. CAPECITABINE [Suspect]
     Dosage: ON DAYS 1-7, 15-20 AND 29-35.
     Route: 048
     Dates: end: 20060607
  2. OXALIPLATIN [Suspect]
     Dosage: ON DAY 1, 8, 15, 22 AND 29.
     Route: 042
     Dates: start: 20060531, end: 20060531
  3. DOCETAXEL [Suspect]
     Dosage: ON DAY 1, 8, 15, 22 AND 29.
     Route: 042
     Dates: start: 20060531, end: 20060531

REACTIONS (2)
  - RESPIRATORY FAILURE [None]
  - STAPHYLOCOCCAL INFECTION [None]
